FAERS Safety Report 6098917-8 (Version None)
Quarter: 2009Q1

REPORT INFORMATION
  Report Type: 
  Country: None (occurrence: None)
  Receive Date: 20090302
  Receipt Date: 20090220
  Transmission Date: 20090719
  Serious: Yes (Hospitalization, Other)
  Sender: FDA-Public Use
  Company Number: US-JNJFOC-20081206348

PATIENT
  Sex: Male
  Weight: 61 kg

DRUGS (6)
  1. REMICADE [Suspect]
     Route: 042
  2. REMICADE [Suspect]
     Indication: COLITIS ULCERATIVE
     Dosage: 6-7 INFUSIONS
     Route: 042
  3. ANTIBIOTIC [Concomitant]
     Indication: COLITIS ULCERATIVE
  4. TYLENOL [Concomitant]
     Indication: PREMEDICATION
  5. BENADRYL [Concomitant]
     Indication: PREMEDICATION
  6. XIFAXAN [Concomitant]
     Indication: COLITIS ULCERATIVE

REACTIONS (5)
  - ANAPHYLACTIC REACTION [None]
  - BLINDNESS [None]
  - FAECAL INCONTINENCE [None]
  - INFUSION RELATED REACTION [None]
  - MYDRIASIS [None]
